FAERS Safety Report 17525386 (Version 3)
Quarter: 2020Q2

REPORT INFORMATION
  Report Type: Spontaneous
  Country: US (occurrence: US)
  Receive Date: 20200311
  Receipt Date: 20200429
  Transmission Date: 20200713
  Serious: No
  Sender: FDA-Public Use
  Company Number: US-CELGENEUS-USA-20200301854

PATIENT
  Age: 63 Year
  Sex: Male

DRUGS (3)
  1. OTEZLA [Suspect]
     Active Substance: APREMILAST
     Indication: PSORIATIC ARTHROPATHY
     Dosage: 30 MILLIGRAM
     Route: 048
     Dates: start: 2020
  2. OTEZLA [Suspect]
     Active Substance: APREMILAST
     Dosage: 60 MILLIGRAM
     Route: 048
     Dates: start: 2020, end: 2020
  3. OTEZLA [Suspect]
     Active Substance: APREMILAST
     Indication: PSORIASIS
     Dosage: 60 MILLIGRAM
     Route: 048
     Dates: start: 20200302, end: 2020

REACTIONS (5)
  - Headache [Not Recovered/Not Resolved]
  - Weight decreased [Not Recovered/Not Resolved]
  - Adverse drug reaction [Unknown]
  - Nausea [Unknown]
  - Diarrhoea [Recovered/Resolved]

NARRATIVE: CASE EVENT DATE: 2020
